FAERS Safety Report 7165422-7 (Version None)
Quarter: 2010Q4

REPORT INFORMATION
  Report Type: 
  Country: None (occurrence: None)
  Receive Date: 20101215
  Receipt Date: 20100114
  Transmission Date: 20110411
  Serious: Yes (Hospitalization)
  Sender: FDA-Public Use
  Company Number: US-AMGEN-QUU383394

PATIENT

DRUGS (7)
  1. ENBREL [Suspect]
     Indication: RHEUMATOID ARTHRITIS
     Dosage: 50 MG, QWK
     Dates: start: 20040101
  2. METHOTREXATE [Concomitant]
     Dosage: 12.5 MG, QWK
     Dates: start: 20031001
  3. FOLIC ACID [Concomitant]
     Dosage: UNK UNK, UNK
  4. IBUPROFEN [Concomitant]
     Dosage: UNK UNK, UNK
  5. CALCIUM CITRATE [Concomitant]
  6. FISH OIL [Concomitant]
  7. MULTI-VITAMINS [Concomitant]

REACTIONS (1)
  - BURSITIS INFECTIVE [None]
